FAERS Safety Report 11103792 (Version 1)
Quarter: 2015Q2

REPORT INFORMATION
  Report Type: Spontaneous
  Country: DE (occurrence: None)
  Receive Date: 20150507
  Receipt Date: 20150507
  Transmission Date: 20150821
  Serious: Yes (Hospitalization)
  Sender: FDA-Public Use
  Company Number: NSR_02071_2015

PATIENT
  Age: 54 Year
  Sex: Male

DRUGS (12)
  1. COMBINATION ANTIRETROVIAL THERAPY [Concomitant]
  2. RITONAVIR. [Concomitant]
     Active Substance: RITONAVIR
  3. BIPERIDEN [Concomitant]
     Active Substance: BIPERIDEN
  4. ALLOPURINOL. [Suspect]
     Active Substance: ALLOPURINOL
     Indication: PRODUCT USED FOR UNKNOWN INDICATION
     Dosage: (DF)
  5. DARUNAVIR [Concomitant]
     Active Substance: DARUNAVIR
  6. OLANZAPIN [Concomitant]
     Active Substance: OLANZAPINE
  7. LAMIVUDINE. [Concomitant]
     Active Substance: LAMIVUDINE
  8. L-THYROXIN [Concomitant]
     Active Substance: LEVOTHYROXINE SODIUM
  9. PROPRANOLOL [Suspect]
     Active Substance: PROPRANOLOL\PROPRANOLOL HYDROCHLORIDE
     Indication: PRODUCT USED FOR UNKNOWN INDICATION
     Dosage: (DF)
  10. METAMIZOL [Suspect]
     Active Substance: METAMIZOLE SODIUM
     Indication: PRODUCT USED FOR UNKNOWN INDICATION
     Dosage: (DF)
  11. ABACAVIR [Concomitant]
     Active Substance: ABACAVIR
  12. CALCITRIOL. [Concomitant]
     Active Substance: CALCITRIOL

REACTIONS (15)
  - Enterococcal sepsis [None]
  - Streptococcal infection [None]
  - Agranulocytosis [None]
  - Sepsis [None]
  - Pseudomembranous colitis [None]
  - Ileus paralytic [None]
  - Metabolic acidosis [None]
  - Pneumonia aspiration [None]
  - Dehydration [None]
  - Candida infection [None]
  - Clostridium difficile infection [None]
  - Peritonitis [None]
  - Gastrointestinal necrosis [None]
  - Megacolon [None]
  - Herpes simplex [None]

NARRATIVE: CASE EVENT DATE: 201306
